FAERS Safety Report 16128644 (Version 1)
Quarter: 2019Q1

REPORT INFORMATION
  Report Type: Spontaneous
  Country: US (occurrence: US)
  Receive Date: 20190328
  Receipt Date: 20190328
  Transmission Date: 20190418
  Serious: No
  Sender: FDA-Public Use
  Company Number: US-ASTRAZENECA-2018SF46554

PATIENT
  Sex: Male

DRUGS (2)
  1. BYDUREON [Suspect]
     Active Substance: EXENATIDE
     Dosage: 2.0MG NOT APPLICABLE
     Route: 065
  2. COUMADIN [Concomitant]
     Active Substance: WARFARIN SODIUM
     Indication: ANTICOAGULANT THERAPY

REACTIONS (2)
  - Injection site haemorrhage [Unknown]
  - Injection site discolouration [Unknown]
